FAERS Safety Report 14656897 (Version 1)
Quarter: 2018Q1

REPORT INFORMATION
  Report Type: Spontaneous
  Country: US (occurrence: US)
  Receive Date: 20180319
  Receipt Date: 20180319
  Transmission Date: 20180509
  Serious: No
  Sender: FDA-Public Use
  Company Number: US-SA-2017SA124586

PATIENT
  Age: 58 Year
  Sex: Female

DRUGS (1)
  1. NASACORT ALLERGY 24HR [Suspect]
     Active Substance: TRIAMCINOLONE ACETONIDE
     Indication: HYPERSENSITIVITY
     Dosage: DOSE AND DOSAGE ONE SPRAY IN EACH NOSTRIL ONCE DAILY.
     Route: 045
     Dates: start: 20170511

REACTIONS (1)
  - Nasal dryness [Not Recovered/Not Resolved]
